FAERS Safety Report 7457545-X (Version None)
Quarter: 2011Q2

REPORT INFORMATION
  Report Type: 
  Country: None (occurrence: None)
  Receive Date: 20110504
  Receipt Date: 20110419
  Transmission Date: 20111010
  Serious: No
  Sender: FDA-Public Use
  Company Number: US-JNJFOC-20110409518

PATIENT
  Sex: Female
  Weight: 77.11 kg

DRUGS (6)
  1. DURAGESIC-50 [Suspect]
     Route: 062
  2. PERCOCET [Concomitant]
     Indication: PAIN
     Route: 048
  3. DURAGESIC-50 [Suspect]
     Indication: BACK PAIN
     Route: 062
  4. DURAGESIC-50 [Suspect]
     Indication: NECK PAIN
     Route: 062
  5. ROBAXIN [Concomitant]
     Indication: PAIN
     Route: 048
  6. DURAGESIC-50 [Suspect]
     Route: 062

REACTIONS (4)
  - PAIN [None]
  - INAPPROPRIATE SCHEDULE OF DRUG ADMINISTRATION [None]
  - DRUG EFFECT DECREASED [None]
  - WITHDRAWAL SYNDROME [None]
